FAERS Safety Report 7283825-7 (Version None)
Quarter: 2011Q1

REPORT INFORMATION
  Report Type: 
  Country: None (occurrence: None)
  Receive Date: 20110209
  Receipt Date: 20110208
  Transmission Date: 20110831
  Serious: Yes (Life-Threatening, Hospitalization)
  Sender: FDA-Public Use
  Company Number: DE-PFIZER INC-DE-WYE-H10255409

PATIENT
  Age: 84 Year
  Sex: Female
  Weight: 63 kg

DRUGS (21)
  1. PANTOPRAZOLE [Suspect]
     Indication: PROPHYLAXIS AGAINST GASTROINTESTINAL ULCER
     Dosage: 20 MG, 1X/DAY
     Route: 048
     Dates: start: 20041001, end: 20090101
  2. SYMBICORT [Interacting]
     Indication: CHRONIC OBSTRUCTIVE PULMONARY DISEASE
     Dosage: 1 DF, 2X/DAY
     Route: 055
     Dates: start: 20080701
  3. CARMEN [Concomitant]
     Indication: HYPERTENSION
     Dosage: 10 MG, 2X/DAY
     Route: 048
     Dates: start: 20041001
  4. SPIRIVA [Concomitant]
     Indication: CHRONIC OBSTRUCTIVE PULMONARY DISEASE
     Dosage: 18 UG, 1X/DAY
     Route: 055
     Dates: start: 20090101
  5. ZIENAM [Interacting]
     Indication: URINARY TRACT INFECTION
     Dosage: 500 MG, 3X/DAY
     Route: 042
     Dates: start: 20090414, end: 20090416
  6. PREDNISOLONE [Interacting]
     Indication: CHRONIC OBSTRUCTIVE PULMONARY DISEASE
     Dosage: 5 MG, 1X/DAY
     Route: 048
     Dates: start: 20090326, end: 20090406
  7. LANTUS [Concomitant]
     Indication: TYPE 1 DIABETES MELLITUS
     Dosage: 8 IU, 1X/DAY
     Route: 058
     Dates: start: 20090501
  8. ACTRAPID HUMAN [Concomitant]
     Indication: TYPE 1 DIABETES MELLITUS
     Dosage: UNK
     Route: 058
     Dates: start: 20080301
  9. RAMIPRIL [Concomitant]
     Indication: HYPERTENSION
     Dosage: 20 MG, 1X/DAY
     Route: 048
     Dates: start: 20070701, end: 20090501
  10. ALDACTONE [Concomitant]
     Indication: HYPERTENSION
     Dosage: 25 MG, 1X/DAY
     Route: 048
     Dates: end: 20090407
  11. CARVEDILOL [Concomitant]
     Indication: HYPERTENSION
     Dosage: 25 MG, 2X/DAY
     Route: 048
     Dates: start: 19950101
  12. SIMETHICONE [Concomitant]
     Route: 048
  13. RULID [Interacting]
     Indication: PNEUMONIA
     Dosage: 300 MG, 1X/DAY
     Route: 048
     Dates: start: 20090326, end: 20090406
  14. ASS ^CT-ARZNEIMITTEL^ [Concomitant]
     Indication: CORONARY ARTERY DISEASE
     Dosage: 100 MG, UNK
     Route: 048
     Dates: start: 19930101, end: 20090414
  15. PANTOPRAZOLE [Interacting]
     Dosage: 40 MG, 1X/DAY
     Route: 048
     Dates: start: 20090101
  16. ROCEPHIN [Interacting]
     Indication: PNEUMONIA
     Dosage: 2 G, 1X/DAY
     Route: 042
     Dates: start: 20090326, end: 20090406
  17. CALCIUM CARBONATE [Concomitant]
     Route: 048
  18. SIMVASTATIN [Concomitant]
     Dosage: UNK
     Route: 048
     Dates: start: 20070701
  19. MOXONIDINE [Concomitant]
     Dosage: UNK
     Route: 048
     Dates: start: 20070720
  20. TOREM [Concomitant]
     Indication: HYPERTENSION
     Dosage: 10 MG, 1X/DAY
     Route: 048
     Dates: start: 20080701, end: 20090407
  21. XIPAMIDE [Concomitant]
     Indication: HYPERTENSION
     Dosage: 20 MG, 1X/DAY
     Route: 048
     Dates: start: 20090326, end: 20090414

REACTIONS (2)
  - DRUG INTERACTION [None]
  - CLOSTRIDIUM DIFFICILE COLITIS [None]
